FAERS Safety Report 17299561 (Version 5)
Quarter: 2020Q2

REPORT INFORMATION
  Report Type: Report from Study
  Country: None (occurrence: CN)
  Receive Date: 20200121
  Receipt Date: 20200424
  Transmission Date: 20200713
  Serious: Yes (Hospitalization)
  Sender: FDA-Public Use
  Company Number: CN-ABBVIE-20P-035-3230426-00

PATIENT
  Age: 74 Year
  Sex: Male
  Weight: 90 kg

DRUGS (23)
  1. INSULIN GLARGINE INJECTION [Concomitant]
     Indication: DIABETES MELLITUS
     Dosage: NIGHTLY
     Route: 058
     Dates: start: 20191225, end: 20191231
  2. VENETOCLAX. [Suspect]
     Active Substance: VENETOCLAX
     Route: 048
     Dates: start: 20180801, end: 20200114
  3. AZACITIDINE. [Suspect]
     Active Substance: AZACITIDINE
     Indication: ACUTE MYELOID LEUKAEMIA
     Dosage: DAYS 1-7 OF EACH 28 DAY CYCLE
     Route: 058
     Dates: start: 20180730, end: 20190703
  4. VENETOCLAX. [Suspect]
     Active Substance: VENETOCLAX
     Route: 048
     Dates: start: 20180731, end: 20180731
  5. 5% SODIUM BICARBONATE [Concomitant]
     Indication: PROPHYLAXIS
     Route: 042
     Dates: start: 20180729, end: 20180802
  6. COMPOUND SODIUM BICARBONATE MOUTHWASH [Concomitant]
     Indication: ORAL INFECTION
     Dosage: 1 CUP
     Route: 048
     Dates: start: 20180710
  7. VITAMIN B6 [Concomitant]
     Active Substance: PYRIDOXINE HYDROCHLORIDE
     Indication: VITAMIN SUPPLEMENTATION
     Route: 042
     Dates: start: 20200111, end: 20200220
  8. VENETOCLAX. [Suspect]
     Active Substance: VENETOCLAX
     Indication: ACUTE MYELOID LEUKAEMIA
     Route: 048
     Dates: start: 20180730, end: 20180730
  9. AZACITIDINE. [Suspect]
     Active Substance: AZACITIDINE
     Dosage: DAYS 1-7 OF EACH 28 DAY CYCLE
     Route: 058
     Dates: start: 20190921, end: 20191231
  10. NORMAL SALINE SOLUTION [Concomitant]
     Indication: PROPHYLAXIS
     Route: 042
     Dates: start: 20180729, end: 20180802
  11. IODINE GLYCEROL [Concomitant]
     Indication: INFECTION PROPHYLAXIS
     Dosage: DOSE: 1 APPLICATION
     Route: 061
     Dates: start: 20180710
  12. COMPOUND SODIUM BICARBONATE MOUTHWASH [Concomitant]
     Indication: PROPHYLAXIS
  13. FEBUXOSTAT. [Concomitant]
     Active Substance: FEBUXOSTAT
     Indication: PROPHYLAXIS
     Route: 048
     Dates: start: 20180729, end: 20180812
  14. FEBUXOSTAT. [Concomitant]
     Active Substance: FEBUXOSTAT
     Route: 042
     Dates: start: 20180803, end: 20180803
  15. ACARBOSE. [Concomitant]
     Active Substance: ACARBOSE
     Indication: DIABETES MELLITUS
     Route: 048
     Dates: start: 2016
  16. 5% SODIUM BICARBONATE [Concomitant]
     Route: 042
     Dates: start: 20180803, end: 20180803
  17. COMPOUND DYCLONINE AND COMPOUND DYCLONINE OINTMENT [Concomitant]
     Indication: PROPHYLAXIS
  18. POVIDONE IODINE SOLUTION 5% [Concomitant]
     Indication: INFECTION PROPHYLAXIS
     Dosage: DOSE: 1 APPLICATION
     Route: 061
     Dates: start: 20180710
  19. COMPOUND HUANGQINLONG TEA PLUG (TRADITIONAL CHINESE MEDICINE) [Concomitant]
     Indication: INFECTION PROPHYLAXIS
     Route: 054
     Dates: start: 20180710
  20. VITAMIN C [Concomitant]
     Active Substance: ASCORBIC ACID
     Indication: VITAMIN SUPPLEMENTATION
     Route: 042
     Dates: start: 20200111, end: 20200220
  21. NORMAL SALINE SOLUTION [Concomitant]
     Route: 042
     Dates: start: 20180803, end: 20180803
  22. COMPOUND DYCLONINE AND COMPOUND DYCLONINE OINTMENT [Concomitant]
     Indication: INFECTION PROPHYLAXIS
     Route: 061
     Dates: start: 20180710
  23. COMPOUND HUANGQINLONG TEA PLUG (TRADITIONAL CHINESE MEDICINE) [Concomitant]
     Indication: PHYTOTHERAPY

REACTIONS (2)
  - Thrombocytopenia [Not Recovered/Not Resolved]
  - Neutropenia [Not Recovered/Not Resolved]

NARRATIVE: CASE EVENT DATE: 20200111
